FAERS Safety Report 6885284-2 (Version None)
Quarter: 2010Q3

REPORT INFORMATION
  Report Type: 
  Country: None (occurrence: None)
  Receive Date: 20100729
  Receipt Date: 20100729
  Transmission Date: 20110219
  Serious: Yes (Life-Threatening, Hospitalization)
  Sender: FDA-Public Use
  Company Number: None

PATIENT
  Age: 72 Year
  Sex: Male
  Weight: 81.6475 kg

DRUGS (3)
  1. DETROL [Suspect]
     Indication: ABDOMINAL DISTENSION
     Dosage: DOCTOR PRESCRIBED ONCE
     Dates: start: 20100713, end: 20100713
  2. DETROL [Suspect]
     Indication: BLADDER SPASM
     Dosage: DOCTOR PRESCRIBED ONCE
     Dates: start: 20100713, end: 20100713
  3. DETROL [Suspect]
     Indication: DISCOMFORT
     Dosage: DOCTOR PRESCRIBED ONCE
     Dates: start: 20100713, end: 20100713

REACTIONS (16)
  - APHASIA [None]
  - DECREASED APPETITE [None]
  - DYSKINESIA [None]
  - DYSPNOEA [None]
  - ERYTHEMA [None]
  - EYE SWELLING [None]
  - FLUSHING [None]
  - HALLUCINATION [None]
  - HEART RATE DECREASED [None]
  - HYPERTENSION [None]
  - LETHARGY [None]
  - LIP DISCOLOURATION [None]
  - MENTAL DISORDER [None]
  - MOUTH BREATHING [None]
  - UNRESPONSIVE TO STIMULI [None]
  - URINARY TRACT INFECTION [None]
